FAERS Safety Report 9773272 (Version 1)
Quarter: 2013Q4

REPORT INFORMATION
  Report Type: Spontaneous
  Country: FI (occurrence: FI)
  Receive Date: 20131219
  Receipt Date: 20131219
  Transmission Date: 20140711
  Serious: Yes (Other)
  Sender: FDA-Public Use
  Company Number: FI-GLAXOSMITHKLINE-B0953941A

PATIENT
  Age: 60 Year
  Sex: Male

DRUGS (7)
  1. SERETIDE [Suspect]
     Indication: PRODUCT USED FOR UNKNOWN INDICATION
     Dosage: 2PUFF TWICE PER DAY
     Route: 055
  2. DEVICE [Suspect]
     Indication: PRODUCT USED FOR UNKNOWN INDICATION
     Route: 065
  3. FLIXOTIDE EVOHALER [Concomitant]
     Dosage: 250MCG SEE DOSAGE TEXT
     Route: 055
  4. SPIRIVA [Concomitant]
  5. ALVESCO [Concomitant]
     Dosage: 160MCG TWICE PER DAY
  6. FORMOTEROL [Concomitant]
     Dosage: 12MCG TWICE PER DAY
  7. HYDROCORTISONE [Concomitant]

REACTIONS (1)
  - Adrenal insufficiency [Recovered/Resolved]
